FAERS Safety Report 12765508 (Version 1)
Quarter: 2016Q3

REPORT INFORMATION
  Report Type: Spontaneous
  Country: US (occurrence: US)
  Receive Date: 20160915
  Receipt Date: 20160915
  Transmission Date: 20161109
  Serious: No
  Sender: FDA-Public Use
  Company Number: None

PATIENT
  Sex: Female

DRUGS (1)
  1. ENBREL [Suspect]
     Active Substance: ETANERCEPT
     Indication: RHEUMATOID ARTHRITIS
     Dosage: 50MG/ML SUBCUTANEOUSLY ONCE WEEKLY
     Route: 058
     Dates: start: 20160708, end: 20160722

REACTIONS (6)
  - Burning sensation [None]
  - Pain [None]
  - Arthralgia [None]
  - Injection site pruritus [None]
  - Injection site erythema [None]
  - Injection site pain [None]
